FAERS Safety Report 24911603 (Version 2)
Quarter: 2025Q1

REPORT INFORMATION
  Report Type: Spontaneous
  Country: US (occurrence: US)
  Receive Date: 20250131
  Receipt Date: 20250204
  Transmission Date: 20250408
  Serious: No
  Sender: PFIZER
  Company Number: US-PFIZER INC-2020219835

PATIENT
  Age: 71 Year
  Sex: Female

DRUGS (1)
  1. ESTRING [Suspect]
     Active Substance: ESTRADIOL
     Indication: Insomnia
     Dosage: 7.5 UG, 1X/DAY (2 MG VAGINAL RING/AS DIRECTED 90 DAYS/7.5 MCG / 24 HR RING)
     Route: 067

REACTIONS (1)
  - Off label use [Unknown]
